FAERS Safety Report 21325996 (Version 1)
Quarter: 2022Q3

REPORT INFORMATION
  Report Type: Spontaneous
  Country: US (occurrence: US)
  Receive Date: 20220913
  Receipt Date: 20220913
  Transmission Date: 20221027
  Serious: Yes (Hospitalization, Other)
  Sender: FDA-Public Use
  Company Number: US-STRIDES ARCOLAB LIMITED-2021SP026152

PATIENT
  Age: 67 Year
  Sex: Male

DRUGS (6)
  1. PREDNISOLONE [Suspect]
     Active Substance: PREDNISOLONE
     Indication: Renal transplant
     Dosage: 5 MILLIGRAM, QID
     Route: 065
  2. TACROLIMUS [Suspect]
     Active Substance: TACROLIMUS
     Indication: Renal transplant
     Dosage: 2 MILLIGRAM, BID
     Route: 065
  3. THYMOGLOBULIN [Suspect]
     Active Substance: LAPINE T-LYMPHOCYTE IMMUNE GLOBULIN
     Indication: Renal transplant
     Dosage: UNK, SINGLE
     Route: 065
  4. MYCOPHENOLIC ACID [Suspect]
     Active Substance: MYCOPHENOLIC ACID
     Indication: Renal transplant
     Dosage: 360 MILLIGRAM, BID
     Route: 065
  5. BASILIXIMAB [Suspect]
     Active Substance: BASILIXIMAB
     Indication: Renal transplant
     Dosage: UNK, SINGLE
     Route: 065
  6. SIROLIMUS [Suspect]
     Active Substance: SIROLIMUS
     Indication: Renal transplant
     Dosage: 2 MILLIGRAM, QID
     Route: 065

REACTIONS (11)
  - Multiple organ dysfunction syndrome [Recovered/Resolved]
  - Acute kidney injury [Recovered/Resolved]
  - Squamous cell carcinoma of skin [Recovered/Resolved]
  - Metastatic malignant melanoma [Recovered/Resolved]
  - Metastases to liver [Recovered/Resolved]
  - Metastases to lung [Recovered/Resolved]
  - Metastases to central nervous system [Recovered/Resolved]
  - Metastases to spleen [Recovered/Resolved]
  - Septic shock [Recovered/Resolved]
  - Transplant rejection [Unknown]
  - Transplant failure [Unknown]

NARRATIVE: CASE EVENT DATE: 20150701
